FAERS Safety Report 6034852-9 (Version None)
Quarter: 2009Q1

REPORT INFORMATION
  Report Type: 
  Country: None (occurrence: None)
  Receive Date: 20090108
  Receipt Date: 20081229
  Transmission Date: 20090719
  Serious: Yes (Death, Hospitalization)
  Sender: FDA-Public Use
  Company Number: BASF-08-021

PATIENT
  Age: 20 Year
  Sex: Female

DRUGS (4)
  1. IBUPROFEN [Suspect]
     Indication: STILL'S DISEASE ADULT ONSET
  2. ETANERCEPT [Concomitant]
  3. METHYLPREDNISOLONE 16MG TAB [Concomitant]
  4. PHENYLBUTAZONE [Concomitant]

REACTIONS (17)
  - BLOOD FIBRINOGEN DECREASED [None]
  - BLOOD TRIGLYCERIDES INCREASED [None]
  - BRAIN INJURY [None]
  - BRAIN OEDEMA [None]
  - COMA [None]
  - CONFUSIONAL STATE [None]
  - CONVULSION [None]
  - EXTRAMEDULLARY HAEMOPOIESIS [None]
  - HAEMODYNAMIC INSTABILITY [None]
  - HEPATIC ENZYME INCREASED [None]
  - HISTIOCYTOSIS HAEMATOPHAGIC [None]
  - NEUTROPHIL PERCENTAGE INCREASED [None]
  - SERUM FERRITIN DECREASED [None]
  - SERUM FERRITIN INCREASED [None]
  - VISUAL IMPAIRMENT [None]
  - WHITE BLOOD CELL COUNT DECREASED [None]
  - WHITE BLOOD CELL COUNT INCREASED [None]
